FAERS Safety Report 8716402 (Version 2)
Quarter: 2012Q4

REPORT INFORMATION
  Report Type: 
  Country: US (occurrence: US)
  Receive Date: 20120810
  Receipt Date: 20121107
  Transmission Date: 20130627
  Serious: No
  Sender: FDA-Public Use
  Company Number: US-009507513-1207USA013100

PATIENT
  Sex: Female

DRUGS (1)
  1. DULERA [Suspect]
     Indication: RESPIRATORY DISORDER
     Dosage: UNK
     Route: 055
     Dates: start: 201107

REACTIONS (7)
  - Osteoporosis [Unknown]
  - Pulmonary function test decreased [Unknown]
  - Respiratory disorder [Unknown]
  - Glaucoma [Unknown]
  - Drug dose omission [Unknown]
  - Product quality issue [Unknown]
  - Dizziness [Unknown]
